FAERS Safety Report 4340108-2 (Version None)
Quarter: 2004Q2

REPORT INFORMATION
  Report Type: 
  Country: None (occurrence: None)
  Receive Date: 20040414
  Receipt Date: 20040402
  Transmission Date: 20050107
  Serious: Yes (Disabling, Other)
  Sender: FDA-Public Use
  Company Number: US-SHR-04-022948

PATIENT
  Age: 43 Year
  Sex: Female

DRUGS (2)
  1. LEUKINE [Suspect]
     Indication: MALIGNANT MELANOMA
     Dosage: 110 MG, 1X/WEEK, SUBCUTANEOUS
     Route: 058
     Dates: start: 20031216
  2. VACCINE (MULTIPLE SYNTHETIC MELANOMA PEPTIDES: MEL 43) [Suspect]
     Indication: MALIGNANT MELANOMA
     Dosage: 2 ML, 1X/WEEK, SUBCUTANEOUS
     Route: 058
     Dates: start: 20031216

REACTIONS (1)
  - PNEUMONITIS [None]
